FAERS Safety Report 13874922 (Version 1)
Quarter: 2017Q3

REPORT INFORMATION
  Report Type: Spontaneous
  Country: US (occurrence: US)
  Receive Date: 20170816
  Receipt Date: 20170816
  Transmission Date: 20171127
  Serious: No
  Sender: FDA-Public Use
  Company Number: US-ROCHE-1051119

PATIENT
  Age: 63 Year
  Sex: Male

DRUGS (2)
  1. LUCENTIS [Suspect]
     Active Substance: RANIBIZUMAB
     Indication: RETINAL VEIN OCCLUSION
     Route: 050
     Dates: start: 20120320
  2. AVASTIN [Suspect]
     Active Substance: BEVACIZUMAB
     Indication: RETINAL VEIN OCCLUSION
     Route: 050

REACTIONS (11)
  - Peripheral coldness [Recovering/Resolving]
  - Pain [Recovering/Resolving]
  - Vision blurred [Unknown]
  - Headache [Recovering/Resolving]
  - Sensory disturbance [Recovering/Resolving]
  - Ocular discomfort [Recovered/Resolved]
  - Metamorphopsia [Recovering/Resolving]
  - Intraocular pressure increased [Unknown]
  - Asthenia [Recovering/Resolving]
  - Burning sensation [Recovering/Resolving]
  - Hypoaesthesia [Recovering/Resolving]

NARRATIVE: CASE EVENT DATE: 20120320
